FAERS Safety Report 13908206 (Version 1)
Quarter: 2017Q3

REPORT INFORMATION
  Report Type: Spontaneous
  Country: IL (occurrence: IL)
  Receive Date: 20170825
  Receipt Date: 20170825
  Transmission Date: 20171127
  Serious: Yes (Other)
  Sender: FDA-Public Use
  Company Number: IL-ELI_LILLY_AND_COMPANY-IL201708006536

PATIENT
  Age: 75 Year
  Sex: Male

DRUGS (5)
  1. GLUCOMIN [Concomitant]
     Active Substance: METFORMIN HYDROCHLORIDE
     Indication: DIABETES MELLITUS
  2. NOVORAPID [Concomitant]
     Active Substance: INSULIN ASPART
     Indication: DIABETES MELLITUS
     Dosage: UNK, THREE TIMES A DAY BEFORE MEAL
  3. FUSID                              /00032601/ [Concomitant]
     Active Substance: FUROSEMIDE
     Indication: PRODUCT USED FOR UNKNOWN INDICATION
  4. INSULIN DEGLUDEC [Concomitant]
     Active Substance: INSULIN DEGLUDEC
     Indication: DIABETES MELLITUS
     Dosage: UNK, BEFORE SLEEP
  5. TRULICITY [Suspect]
     Active Substance: DULAGLUTIDE
     Indication: WEIGHT CONTROL
     Dosage: 0.75 MG, WEEKLY (1/W)
     Route: 065

REACTIONS (5)
  - Dizziness [Recovered/Resolved]
  - Stupor [Recovered/Resolved]
  - Off label use [Unknown]
  - Vertigo [Recovered/Resolved]
  - Fatigue [Recovered/Resolved]
